FAERS Safety Report 6879458-4 (Version None)
Quarter: 2010Q3

REPORT INFORMATION
  Report Type: 
  Country: None (occurrence: None)
  Receive Date: 20100728
  Receipt Date: 20100716
  Transmission Date: 20110219
  Serious: Yes (Other)
  Sender: FDA-Public Use
  Company Number: GB-WATSON-2010-09792

PATIENT
  Age: 79 Year
  Sex: Male
  Weight: 89 kg

DRUGS (7)
  1. AMLODIPINE BESYLATE [Suspect]
     Indication: HYPERTENSION
     Dosage: 5 MG, UNKNOWN
     Route: 048
     Dates: start: 20100215, end: 20100218
  2. ACEBUTOLOL [Concomitant]
     Dosage: 200 MG, DAILY
  3. ASACOL [Concomitant]
     Dosage: 2 DF, TID, STRENGTH=400MG
     Route: 048
  4. LANSOPRAZOLE [Concomitant]
     Dosage: UNK
     Route: 048
  5. RAMIPRIL [Concomitant]
     Dosage: 5 MG, UNKNOWN
     Dates: start: 20100202
  6. RAMIPRIL [Concomitant]
     Dosage: 2 1/2 MG, UNKNOWN
     Dates: start: 20100104, end: 20100201
  7. SIMVASTATIN [Concomitant]
     Dosage: 40 MG, UNKNOWN
     Route: 048

REACTIONS (4)
  - ABDOMINAL PAIN [None]
  - FATIGUE [None]
  - HEPATITIS [None]
  - LETHARGY [None]
